FAERS Safety Report 8409193-2 (Version None)
Quarter: 2012Q2

REPORT INFORMATION
  Report Type: 
  Country: None (occurrence: None)
  Receive Date: 20120604
  Receipt Date: 20120529
  Transmission Date: 20120825
  Serious: Yes (Other)
  Sender: FDA-Public Use
  Company Number: DE-ROCHE-1044338

PATIENT
  Sex: Female
  Weight: 46 kg

DRUGS (6)
  1. MABTHERA [Suspect]
     Indication: RHEUMATOID ARTHRITIS
     Route: 042
     Dates: start: 20080310, end: 20091117
  2. DEXAMETHASONE [Suspect]
     Indication: PLASMACYTOMA
     Route: 048
     Dates: start: 20080602, end: 20091003
  3. INTERFERON GAMMA NOS [Concomitant]
     Indication: HEPATITIS C
     Route: 058
     Dates: start: 20091214, end: 20101115
  4. COPEGUS [Concomitant]
     Indication: HEPATITIS C
     Route: 048
     Dates: start: 20091214, end: 20101115
  5. MABTHERA [Suspect]
     Route: 042
     Dates: start: 20101130, end: 20111220
  6. THALIDOMIDE [Suspect]
     Indication: PLASMACYTOMA
     Route: 048
     Dates: start: 20080602, end: 20091003

REACTIONS (2)
  - BLOOD DISORDER [None]
  - HEPATITIS C [None]
